FAERS Safety Report 24930892 (Version 3)
Quarter: 2025Q1

REPORT INFORMATION
  Report Type: Spontaneous
  Country: CZ (occurrence: CZ)
  Receive Date: 20250205
  Receipt Date: 20250220
  Transmission Date: 20250408
  Serious: Yes (Other)
  Sender: EISAI
  Company Number: CZ-Eisai-EC-2025-183469

PATIENT
  Age: 45 Year
  Sex: Female

DRUGS (3)
  1. LENVATINIB [Suspect]
     Active Substance: LENVATINIB
     Indication: Renal cancer
     Dates: start: 20211018, end: 20211110
  2. LENVATINIB [Suspect]
     Active Substance: LENVATINIB
     Dates: start: 20211130
  3. PEMBROLIZUMAB [Suspect]
     Active Substance: PEMBROLIZUMAB
     Indication: Renal cancer
     Dates: start: 20211018, end: 202204

REACTIONS (4)
  - Autoimmune hepatitis [Recovered/Resolved]
  - Fatigue [Unknown]
  - Myalgia [Unknown]
  - Immune-mediated dermatitis [Recovered/Resolved]

NARRATIVE: CASE EVENT DATE: 20211101
